FAERS Safety Report 17663215 (Version 4)
Quarter: 2020Q3

REPORT INFORMATION
  Report Type: Report from Study
  Country: CO (occurrence: CO)
  Receive Date: 20200414
  Receipt Date: 20200701
  Transmission Date: 20201102
  Serious: Yes (Other)
  Sender: FDA-Public Use
  Company Number: CO-INCYTE CORPORATION-2020IN003423

PATIENT

DRUGS (9)
  1. ATORVASTATIN [Suspect]
     Active Substance: ATORVASTATIN
     Indication: PRODUCT USED FOR UNKNOWN INDICATION
     Dosage: 40 MG, QD
     Route: 065
  2. THYROXINE [Concomitant]
     Active Substance: LEVOTHYROXINE
     Indication: THYROID DISORDER
     Dosage: 250 MG, QD
     Route: 048
     Dates: start: 2017
  3. THYROXINE [Concomitant]
     Active Substance: LEVOTHYROXINE
     Dosage: 50 MG
     Route: 048
  4. JAKAVI [Suspect]
     Active Substance: RUXOLITINIB
     Indication: POLYCYTHAEMIA VERA
     Dosage: 10 MG, Q12H
     Route: 048
     Dates: start: 201908, end: 201911
  5. LEVOTHYROXINE. [Concomitant]
     Active Substance: LEVOTHYROXINE
     Indication: THYROID OPERATION
     Dosage: UNK, QD (FROM MONDAY TO THURSDAY 200 MG ONCE DAILY AND FROM FRIDAY TO SUNDAY 250 MG ONCE DAILY)
     Route: 065
  6. VITAMIN D [ERGOCALCIFEROL] [Concomitant]
     Active Substance: ERGOCALCIFEROL
     Indication: VITAMIN D DEFICIENCY
     Dosage: UNK, QD
     Route: 048
  7. VERAPAMIL [Concomitant]
     Active Substance: VERAPAMIL HYDROCHLORIDE
     Indication: HYPERTENSION
     Dosage: 120 MG, Q12H
     Route: 048
  8. LOSARTAN. [Suspect]
     Active Substance: LOSARTAN
     Indication: HYPERTENSION
     Dosage: 50 MG, Q12H
     Route: 048
  9. ALLOPURINOL. [Concomitant]
     Active Substance: ALLOPURINOL
     Indication: PRODUCT USED FOR UNKNOWN INDICATION
     Dosage: 300 MG, QD
     Route: 048

REACTIONS (8)
  - Abdominal pain upper [Recovered/Resolved]
  - Malaise [Unknown]
  - Chest pain [Recovered/Resolved]
  - Haemoglobin abnormal [Unknown]
  - Inappropriate schedule of product administration [Unknown]
  - Blood triglycerides increased [Unknown]
  - Cholelithiasis [Unknown]
  - Blood cholesterol increased [Unknown]

NARRATIVE: CASE EVENT DATE: 20200120
